FAERS Safety Report 5867963-9 (Version None)
Quarter: 2008Q3

REPORT INFORMATION
  Report Type: 
  Country: None (occurrence: None)
  Receive Date: 20080902
  Receipt Date: 20080826
  Transmission Date: 20090109
  Serious: Yes (Hospitalization)
  Sender: FDA-Public Use
  Company Number: FR-BOEHRINGER INGELHEIM GMBH, GERMANY-2008-DE-05165BY

PATIENT
  Sex: Male

DRUGS (11)
  1. PRITOR [Suspect]
     Indication: HYPERTENSION
     Route: 048
     Dates: end: 20080725
  2. ACEBUTOLOL [Suspect]
     Indication: HYPERTENSION
     Route: 048
     Dates: start: 20080724, end: 20080725
  3. AMIODARONE HCL [Suspect]
     Indication: ATRIAL FIBRILLATION
     Route: 048
     Dates: start: 20080621, end: 20080724
  4. GLUCOPHAGE [Concomitant]
     Indication: DRUG USE FOR UNKNOWN INDICATION
     Route: 065
  5. DIAMICRON [Concomitant]
     Indication: DRUG USE FOR UNKNOWN INDICATION
     Route: 065
  6. BIPRETERAX [Concomitant]
     Indication: DRUG USE FOR UNKNOWN INDICATION
     Route: 065
  7. OFLOCET [Concomitant]
     Indication: URINARY TRACT INFECTION
     Route: 065
  8. LOXEN [Concomitant]
     Indication: DRUG USE FOR UNKNOWN INDICATION
     Route: 065
     Dates: end: 20080723
  9. LORATADINE [Concomitant]
     Indication: DRUG USE FOR UNKNOWN INDICATION
     Route: 065
  10. CORDARONE [Concomitant]
     Indication: DRUG USE FOR UNKNOWN INDICATION
     Route: 065
  11. PREVISCAN [Concomitant]
     Indication: DRUG USE FOR UNKNOWN INDICATION
     Route: 065

REACTIONS (5)
  - BRADYCARDIA [None]
  - LOW CARDIAC OUTPUT SYNDROME [None]
  - MALAISE [None]
  - RENAL FAILURE ACUTE [None]
  - SICK SINUS SYNDROME [None]
